FAERS Safety Report 6393632-5 (Version None)
Quarter: 2009Q4

REPORT INFORMATION
  Report Type: 
  Country: None (occurrence: None)
  Receive Date: 20091008
  Receipt Date: 20091001
  Transmission Date: 20100525
  Serious: Yes (Hospitalization)
  Sender: FDA-Public Use
  Company Number: ES-ABBOTT-09P-144-0600358-00

PATIENT
  Sex: Female

DRUGS (8)
  1. HUMIRA [Suspect]
     Indication: RHEUMATOID ARTHRITIS
     Route: 058
     Dates: start: 20091002
  2. METHOTREXATE [Concomitant]
     Indication: RHEUMATOID ARTHRITIS
     Dates: start: 19990701
  3. DEZACOR [Concomitant]
     Indication: PAIN
     Route: 048
     Dates: start: 20020815
  4. DEZACOR [Concomitant]
     Indication: SWELLING
  5. MOVALIS [Concomitant]
     Indication: PAIN
     Route: 048
     Dates: start: 20030226
  6. CELESTODERM [Concomitant]
     Indication: ERYTHEMA
     Dosage: ONE TOUC
     Route: 061
     Dates: start: 20030509
  7. CELESTODERM [Concomitant]
     Indication: PROPHYLAXIS
  8. ADALIMUMAB [Concomitant]
     Indication: RHEUMATOID ARTHRITIS
     Route: 058
     Dates: start: 20040404

REACTIONS (1)
  - PANCREATIC CARCINOMA [None]
